FAERS Safety Report 8785922 (Version 1)
Quarter: 2012Q4

REPORT INFORMATION
  Report Type: 
  Country: US (occurrence: US)
  Receive Date: 20120914
  Receipt Date: 20120914
  Transmission Date: 20130627
  Serious: Yes (Other)
  Sender: FDA-Public Use
  Company Number: US-VERTEX PHARMACEUTICAL INC.-AE-2012-008628

PATIENT
  Sex: Male

DRUGS (10)
  1. VX-950 [Suspect]
     Indication: HEPATITIS C
     Dosage: 750 mg, tid
     Route: 048
     Dates: start: 20120516
  2. RIBASPHERE [Concomitant]
     Indication: HEPATITIS C
     Dosage: 600 mg, bid
     Route: 048
     Dates: start: 20120516
  3. PEGASYS [Concomitant]
     Indication: HEPATITIS C
     Dosage: 180 ?g, UNK
     Route: 058
     Dates: start: 20120516
  4. BENICAR [Concomitant]
     Indication: HYPERTENSION
     Dosage: 20 mg, qd
     Route: 048
     Dates: start: 20120612
  5. BAYER CONTOUR TEST IN VITRO STRIP [Concomitant]
     Dosage: UNK, bid
  6. FOLIC ACID ALMUS [Concomitant]
     Dosage: 1 mg, UNK
     Route: 048
     Dates: start: 20120709
  7. GLIPIZIDE [Concomitant]
     Dosage: 5 mg, UNK
     Route: 048
     Dates: start: 20120709
  8. IRON                               /00023503/ [Concomitant]
  9. METFORMIN [Concomitant]
     Dosage: 1000 mg, bid
     Route: 048
     Dates: start: 20111114
  10. VITAMIN C                          /00008001/ [Concomitant]
     Dosage: 500 mg, tid
     Route: 048
     Dates: start: 20120709

REACTIONS (7)
  - Leukopenia [Recovered/Resolved]
  - Granulocytopenia [Recovered/Resolved]
  - Dizziness [Not Recovered/Not Resolved]
  - Hypotension [Not Recovered/Not Resolved]
  - Fatigue [Not Recovered/Not Resolved]
  - Rash generalised [Not Recovered/Not Resolved]
  - Anaemia [Recovered/Resolved]
